FAERS Safety Report 5627955-1 (Version None)
Quarter: 2008Q1

REPORT INFORMATION
  Report Type: 
  Country: None (occurrence: None)
  Receive Date: 20080215
  Receipt Date: 20080204
  Transmission Date: 20080703
  Serious: Yes (Other)
  Sender: FDA-Public Use
  Company Number: US-AMGEN-US264408

PATIENT
  Age: 43 Year
  Sex: Male

DRUGS (5)
  1. ENBREL [Suspect]
     Indication: PSORIATIC ARTHROPATHY
     Dosage: UNKNOWN
     Dates: start: 20051001
  2. TRIAMCINOLONE [Concomitant]
  3. HYDROXYZINE [Concomitant]
  4. LEFLUNOMIDE [Concomitant]
     Indication: PSORIATIC ARTHROPATHY
  5. AMLODIPINE [Concomitant]

REACTIONS (1)
  - MONONEUROPATHY [None]
